FAERS Safety Report 9707323 (Version 1)
Quarter: 2013Q4

REPORT INFORMATION
  Report Type: Spontaneous
  Country: US (occurrence: US)
  Receive Date: 20131125
  Receipt Date: 20131125
  Transmission Date: 20140711
  Serious: No
  Sender: FDA-Public Use
  Company Number: US-GLAXOSMITHKLINE-A1013788A

PATIENT
  Age: 55 Year
  Sex: Female

DRUGS (6)
  1. FLOVENT [Suspect]
     Indication: ASTHMA
     Dosage: 1PUFF TWICE PER DAY
     Route: 055
     Dates: start: 20130225
  2. COPAXONE [Concomitant]
  3. B-12 VITAMIN [Concomitant]
  4. POTASSIUM [Concomitant]
  5. HCTZ [Concomitant]
  6. PRO-AIR [Concomitant]

REACTIONS (2)
  - Accidental overdose [Unknown]
  - Headache [Not Recovered/Not Resolved]
